FAERS Safety Report 6821798-9 (Version None)
Quarter: 2010Q3

REPORT INFORMATION
  Report Type: 
  Country: None (occurrence: None)
  Receive Date: 20100706
  Receipt Date: 20100706
  Transmission Date: 20110219
  Serious: No
  Sender: FDA-Public Use
  Company Number: None

PATIENT

DRUGS (2)
  1. FER-IRON DROPS 15 MG PER 1 ML -NEW FORMULA- RUGBY [Suspect]
  2. FER-IRON DROPS 15 MG PER 0.6 ML -OLD FORMULA- RUGBY [Suspect]

REACTIONS (3)
  - CIRCUMSTANCE OR INFORMATION CAPABLE OF LEADING TO MEDICATION ERROR [None]
  - MEDICATION ERROR [None]
  - PRODUCT IDENTIFICATION NUMBER ISSUE [None]
